FAERS Safety Report 7324219-5 (Version None)
Quarter: 2011Q1

REPORT INFORMATION
  Report Type: 
  Country: None (occurrence: None)
  Receive Date: 20110301
  Receipt Date: 20110215
  Transmission Date: 20110831
  Serious: Yes (Other)
  Sender: FDA-Public Use
  Company Number: PT-AMGEN-PRTSP2011005621

PATIENT
  Age: 42 Year
  Sex: Male
  Weight: 60 kg

DRUGS (4)
  1. ENBREL [Suspect]
     Indication: PSORIASIS
     Dosage: 50 MG, WEEKLY
     Route: 058
     Dates: start: 20060201
  2. ENBREL [Suspect]
     Dosage: 50 MG, WEEKLY
     Route: 058
     Dates: start: 20101201, end: 20110118
  3. ENBREL [Suspect]
     Dosage: 50 MG, QWK
     Route: 058
     Dates: start: 20070401
  4. ENBREL [Suspect]
     Dosage: 50 MG, WEEKLY
     Route: 058
     Dates: start: 20081001, end: 20100501

REACTIONS (9)
  - MALAISE [None]
  - LOSS OF CONSCIOUSNESS [None]
  - PRESYNCOPE [None]
  - DIZZINESS [None]
  - HEADACHE [None]
  - ASTHENIA [None]
  - HYPERSENSITIVITY [None]
  - DERMATITIS EXFOLIATIVE [None]
  - DRUG INEFFECTIVE [None]
